FAERS Safety Report 20058616 (Version 1)
Quarter: 2021Q4

REPORT INFORMATION
  Report Type: Spontaneous
  Country: US (occurrence: US)
  Receive Date: 20211111
  Receipt Date: 20211111
  Transmission Date: 20220304
  Serious: Yes (Other)
  Sender: FDA-Public Use
  Company Number: US-TEVA-2021-US-1977933

PATIENT
  Age: 74 Year
  Sex: Female
  Weight: 110.2 kg

DRUGS (4)
  1. FOSINOPRIL [Suspect]
     Active Substance: FOSINOPRIL
     Dosage: TAKE 1 TABLET BY MOUTH EVERY DAY
     Route: 048
     Dates: start: 20081121
  2. NIFEDIPINE [Concomitant]
     Active Substance: NIFEDIPINE
     Dosage: TAKE 1 TABLET BY MOUTH EVERY DAY
     Route: 048
     Dates: start: 20100621
  3. ASPIRIN [Concomitant]
     Active Substance: ASPIRIN
     Dosage: 1 TAB, QD
     Route: 048
  4. MOBIC [Concomitant]
     Active Substance: MELOXICAM
     Dosage: QD
     Route: 048

REACTIONS (2)
  - Angioedema [Recovered/Resolved]
  - Drug hypersensitivity [Recovered/Resolved]

NARRATIVE: CASE EVENT DATE: 20100817
